FAERS Safety Report 6706086-3 (Version None)
Quarter: 2010Q2

REPORT INFORMATION
  Report Type: 
  Country: None (occurrence: None)
  Receive Date: 20100503
  Receipt Date: 20100422
  Transmission Date: 20101027
  Serious: Yes (Hospitalization)
  Sender: FDA-Public Use
  Company Number: DE-SANOFI-AVENTIS-2010SA023265

PATIENT
  Age: 57 Year
  Sex: Female

DRUGS (3)
  1. ARAVA [Suspect]
     Route: 048
  2. METHOTREXATE [Suspect]
     Route: 065
  3. GANCICLOVIR [Concomitant]
     Indication: DRUG USE FOR UNKNOWN INDICATION
     Route: 065

REACTIONS (4)
  - CYTOMEGALOVIRUS INFECTION [None]
  - DERMATITIS [None]
  - PANCYTOPENIA [None]
  - SUPERINFECTION FUNGAL [None]
